FAERS Safety Report 6519727-0 (Version None)
Quarter: 2009Q4

REPORT INFORMATION
  Report Type: 
  Country: None (occurrence: None)
  Receive Date: 20091228
  Receipt Date: 20091228
  Transmission Date: 20100525
  Serious: Yes (Other)
  Sender: FDA-Public Use
  Company Number: None

PATIENT
  Age: 65 Year
  Sex: Female
  Weight: 95.709 kg

DRUGS (2)
  1. BENICAR HCT [Suspect]
     Indication: WEIGHT INCREASED
     Dosage: 1 DAILY PO
     Route: 048
     Dates: start: 20091203, end: 20091226
  2. LANTUS [Suspect]
     Indication: DIABETES MELLITUS
     Dosage: 50 UNITS 2 TIMES DAILY OTHER
     Route: 050
     Dates: start: 20090904, end: 20091226

REACTIONS (8)
  - BLOOD GLUCOSE FLUCTUATION [None]
  - GAIT DISTURBANCE [None]
  - INJECTION SITE PAIN [None]
  - INJECTION SITE SWELLING [None]
  - JOINT SWELLING [None]
  - MYALGIA [None]
  - PRURITUS [None]
  - WEIGHT INCREASED [None]
